FAERS Safety Report 4544457-4 (Version None)
Quarter: 2004Q4

REPORT INFORMATION
  Report Type: 
  Country: None (occurrence: None)
  Receive Date: 20041230
  Receipt Date: 20040106
  Transmission Date: 20050328
  Serious: Yes (Other)
  Sender: FDA-Public Use
  Company Number: 04-000905

PATIENT
  Sex: Female

DRUGS (3)
  1. OVCON-50 [Suspect]
     Indication: CONTRACEPTION
     Dosage: 50/1000 UG, ORAL
     Route: 048
  2. LO/OVRAL [Suspect]
     Indication: CONTRACEPTION
     Dosage: ORAL
     Route: 048
  3. PROMETRIUM [Suspect]
     Dosage: ORAL
     Route: 048

REACTIONS (3)
  - DIPLOPIA [None]
  - MENINGIOMA [None]
  - PROGESTERONE RECEPTOR ASSAY POSITIVE [None]
